FAERS Safety Report 11302287 (Version 1)
Quarter: 2015Q3

REPORT INFORMATION
  Report Type: Spontaneous
  Country: KZ (occurrence: KZ)
  Receive Date: 20150723
  Receipt Date: 20150723
  Transmission Date: 20151125
  Serious: Yes (Life-Threatening)
  Sender: FDA-Public Use
  Company Number: PHHY2015KZ087675

PATIENT
  Age: 64 Year
  Sex: Female

DRUGS (12)
  1. BISOPROLOL [Concomitant]
     Active Substance: BISOPROLOL
     Indication: HYPERTENSION
  2. BISOPROLOL [Concomitant]
     Active Substance: BISOPROLOL
     Indication: CARDIAC FAILURE CONGESTIVE
  3. CONCOR COR [Concomitant]
     Active Substance: BISOPROLOL FUMARATE
     Indication: CARDIAC FAILURE CHRONIC
     Route: 048
  4. ONBREZ BREEZHALER [Suspect]
     Active Substance: INDACATEROL
     Indication: MYOCARDIAL ISCHAEMIA
  5. HARTIL [Concomitant]
     Indication: CARDIAC FAILURE CHRONIC
  6. ONBREZ BREEZHALER [Suspect]
     Active Substance: INDACATEROL
     Indication: CHRONIC OBSTRUCTIVE PULMONARY DISEASE
     Dosage: 300 MG, QD
     Route: 055
     Dates: start: 201502
  7. ONBREZ BREEZHALER [Suspect]
     Active Substance: INDACATEROL
     Indication: ASTHMA
  8. SALBUTAMOL [Concomitant]
     Active Substance: ALBUTEROL
     Indication: BRONCHOSPASM
     Route: 055
  9. SALBUTAMOL [Concomitant]
     Active Substance: ALBUTEROL
     Indication: ASTHMA
  10. HARTIL [Concomitant]
     Indication: HYPERTENSION
     Route: 048
  11. BISOPROLOL [Concomitant]
     Active Substance: BISOPROLOL
     Indication: MYOCARDIAL ISCHAEMIA
     Route: 048
  12. CONCOR COR [Concomitant]
     Active Substance: BISOPROLOL FUMARATE
     Indication: LEFT VENTRICULAR DYSFUNCTION

REACTIONS (6)
  - Tachycardia [Not Recovered/Not Resolved]
  - Arrhythmia [Not Recovered/Not Resolved]
  - Cough [Not Recovered/Not Resolved]
  - Dizziness [Not Recovered/Not Resolved]
  - Off label use [Not Recovered/Not Resolved]
  - Forced expiratory volume decreased [Not Recovered/Not Resolved]
